FAERS Safety Report 7257517-4 (Version None)
Quarter: 2011Q1

REPORT INFORMATION
  Report Type: 
  Country: None (occurrence: None)
  Receive Date: 20110129
  Receipt Date: 20100630
  Transmission Date: 20110831
  Serious: No
  Sender: FDA-Public Use
  Company Number: US-ABBOTT-10P-163-0646701-00

PATIENT
  Sex: Female
  Weight: 63.56 kg

DRUGS (3)
  1. PREDNISONE [Suspect]
     Indication: CROHN'S DISEASE
     Dates: start: 20100401
  2. PREDNISONE [Concomitant]
  3. HUMIRA [Suspect]
     Indication: CROHN'S DISEASE
     Dates: start: 20100427

REACTIONS (5)
  - FATIGUE [None]
  - STOMATITIS [None]
  - PAIN [None]
  - ABDOMINAL PAIN [None]
  - VOMITING [None]
